FAERS Safety Report 9181332 (Version 1)
Quarter: 2013Q1

REPORT INFORMATION
  Report Type: Spontaneous
  Country: US (occurrence: None)
  Receive Date: 20130320
  Receipt Date: 20130320
  Transmission Date: 20140127
  Serious: Yes (Death)
  Sender: FDA-Public Use
  Company Number: SYM-2013-01581

PATIENT
  Sex: Female

DRUGS (1)
  1. XENAZINE (TETRABENAZINE) (UNKNOWN) (TETRABENAZINE) [Suspect]
     Indication: HUNTINGTON^S DISEASE
     Dosage: 12.5 MG, 2 TABLETS 3 TIMES DAILY, ORAL
     Route: 048
     Dates: start: 20111013

REACTIONS (1)
  - Death [None]
